FAERS Safety Report 9261701 (Version 1)
Quarter: 2013Q2

REPORT INFORMATION
  Report Type: Spontaneous
  Country: JP (occurrence: JP)
  Receive Date: 20130429
  Receipt Date: 20130429
  Transmission Date: 20140414
  Serious: Yes (Other)
  Sender: FDA-Public Use
  Company Number: JP-PFIZER INC-2013126552

PATIENT
  Age: 9 Decade
  Sex: Male

DRUGS (4)
  1. CELECOX [Suspect]
     Dosage: 200 MG, BID
     Route: 048
     Dates: start: 20130322
  2. OPALMON [Concomitant]
     Dosage: UNK
  3. METHYCOBAL [Concomitant]
     Dosage: UNK
     Route: 048
  4. MUCOSTA [Concomitant]
     Dosage: UNK
     Route: 048

REACTIONS (2)
  - Depressed level of consciousness [Unknown]
  - Dizziness [Unknown]
